FAERS Safety Report 4624465-5 (Version None)
Quarter: 2005Q2

REPORT INFORMATION
  Report Type: 
  Country: None (occurrence: None)
  Receive Date: 20050325
  Receipt Date: 20050203
  Transmission Date: 20051028
  Serious: No
  Sender: FDA-Public Use
  Company Number: US_980503992

PATIENT
  Age: 55 Year
  Sex: Female
  Weight: 55 kg

DRUGS (3)
  1. EVISTA [Suspect]
     Indication: OSTEOPOROSIS
     Dosage: 60 MG/1 DAY
     Dates: start: 19980101
  2. EVISTA [Suspect]
     Indication: PROPHYLAXIS
     Dosage: 60 MG/1 DAY
     Dates: start: 19980101
  3. FORTEO [Suspect]
     Dosage: 20 UG/1 DAY

REACTIONS (6)
  - HEADACHE [None]
  - HOT FLUSH [None]
  - INJECTION SITE HAEMORRHAGE [None]
  - MUSCLE SPASMS [None]
  - NERVOUSNESS [None]
  - URTICARIA [None]
